FAERS Safety Report 11272743 (Version 4)
Quarter: 2016Q1

REPORT INFORMATION
  Report Type: Report from Study
  Country: US (occurrence: US)
  Receive Date: 20150715
  Receipt Date: 20160208
  Transmission Date: 20160525
  Serious: No
  Sender: FDA-Public Use
  Company Number: US-AMGEN-USASL2015068225

PATIENT
  Age: 61 Year
  Sex: Female

DRUGS (1)
  1. ENBREL [Suspect]
     Active Substance: ETANERCEPT
     Indication: RHEUMATOID ARTHRITIS
     Dosage: 50 MG, ONCE WEEKLY
     Route: 065
     Dates: start: 20150418

REACTIONS (12)
  - Insomnia [Unknown]
  - Arthralgia [Not Recovered/Not Resolved]
  - Catheterisation cardiac [Unknown]
  - Knee operation [Unknown]
  - Neck pain [Unknown]
  - Arthropathy [Not Recovered/Not Resolved]
  - Fall [Unknown]
  - Musculoskeletal discomfort [Unknown]
  - Depression [Unknown]
  - Productive cough [Unknown]
  - Surgery [Unknown]
  - Pain [Unknown]

NARRATIVE: CASE EVENT DATE: 2015
